FAERS Safety Report 7135385-9 (Version None)
Quarter: 2010Q4

REPORT INFORMATION
  Report Type: 
  Country: None (occurrence: None)
  Receive Date: 20101118
  Receipt Date: 20101104
  Transmission Date: 20110411
  Serious: Yes (Death, Hospitalization)
  Sender: FDA-Public Use
  Company Number: 2010SP003136

PATIENT
  Age: 93 Year
  Sex: Female

DRUGS (1)
  1. BROVANA [Suspect]
     Indication: CHRONIC OBSTRUCTIVE PULMONARY DISEASE
     Dosage: 15 UG/2ML; BID; INHALATION
     Route: 055
     Dates: end: 20101001

REACTIONS (3)
  - ASTHENIA [None]
  - PLEURAL EFFUSION [None]
  - PNEUMONIA [None]
